FAERS Safety Report 7023695 (Version 3)
Quarter: 2018Q4

REPORT INFORMATION
  Report Type: Spontaneous
  Country: US (occurrence: US)
  Receive Date: 20090615
  Receipt Date: 20181112
  Transmission Date: 20190205
  Serious: Yes (Death, Congenital Anomaly, Other)
  Sender: FDA-Public Use
  Company Number: US-AVENTIS-200915095US

PATIENT
  Sex: Female

DRUGS (11)
  1. NORVASC [Suspect]
     Active Substance: AMLODIPINE BESYLATE
     Indication: HYPERTENSION
     Dosage: DOSE AS USED: UNK
     Route: 064
  2. PREDNISONE. [Suspect]
     Active Substance: PREDNISONE
     Indication: IMMUNOSUPPRESSANT DRUG THERAPY
  3. MYCOPHENOLATE MOFETIL. [Suspect]
     Active Substance: MYCOPHENOLATE MOFETIL
     Indication: IMMUNOSUPPRESSANT DRUG THERAPY
     Dosage: 500 MG,QD
     Route: 064
  4. TACROLIMUS. [Suspect]
     Active Substance: TACROLIMUS
     Indication: IMMUNOSUPPRESSANT DRUG THERAPY
  5. ACICLOVIR [Concomitant]
     Active Substance: ACYCLOVIR
     Indication: HERPES ZOSTER
     Dosage: DOSE AS USED: UNK
     Route: 064
  6. TACROLIMUS. [Suspect]
     Active Substance: TACROLIMUS
     Indication: RENAL TRANSPLANT
     Dosage: DOSE AS USED: 3 MG AM, 2MG PM
     Route: 064
  7. EPOGEN [Suspect]
     Active Substance: ERYTHROPOIETIN
     Dosage: DOSE AS USED: UNK
     Route: 064
  8. LASIX [Suspect]
     Active Substance: FUROSEMIDE
     Indication: HYPERTENSION
     Dosage: DOSE AS USED: UNK
     Route: 064
  9. PREDNISONE. [Suspect]
     Active Substance: PREDNISONE
     Indication: PROPHYLAXIS
     Dosage: 5 MG,QD
     Route: 064
  10. METOPROLOL SALT NOT SPECIFIED [Suspect]
     Active Substance: METOPROLOL
     Indication: HYPERTENSION
     Dosage: DOSE AS USED: UNK
     Route: 064
  11. MULTIVITAMINS, COMBINATIONS [Concomitant]
     Active Substance: VITAMINS
     Dosage: DOSE AS USED: UNK
     Route: 064

REACTIONS (18)
  - Dysmorphism [Fatal]
  - Tracheo-oesophageal fistula [Fatal]
  - Fryns syndrome [Unknown]
  - Microtia [Fatal]
  - Heart disease congenital [Fatal]
  - Coarctation of the aorta [Unknown]
  - Congenital diaphragmatic hernia [Fatal]
  - Oesophageal atresia [Fatal]
  - Congenital nail disorder [Fatal]
  - Cleft palate [Fatal]
  - Congenital anomaly [Unknown]
  - Atrial septal defect [Fatal]
  - Pulmonary hypoplasia [Fatal]
  - Abdominal hernia [Unknown]
  - Multiple congenital abnormalities [Fatal]
  - Craniofacial deformity [Fatal]
  - Cyanosis [Unknown]
  - Exposure during pregnancy [Fatal]

NARRATIVE: CASE EVENT DATE: 2005
